FAERS Safety Report 9935299 (Version 1)
Quarter: 2014Q1

REPORT INFORMATION
  Report Type: Spontaneous
  Country: US (occurrence: US)
  Receive Date: 20140228
  Receipt Date: 20140228
  Transmission Date: 20141002
  Serious: Yes (Hospitalization)
  Sender: FDA-Public Use
  Company Number: US-ELI_LILLY_AND_COMPANY-US201402005696

PATIENT
  Age: 76 Year
  Sex: Male

DRUGS (12)
  1. HUMULIN NPH [Suspect]
     Indication: TYPE 2 DIABETES MELLITUS
     Dosage: 30 U, EACH EVENING
     Route: 065
  2. HUMALOG LISPRO [Suspect]
     Indication: TYPE 2 DIABETES MELLITUS
     Dosage: 15 U, QD
     Route: 065
  3. HUMALOG 25% LISPRO, 75% NPL [Suspect]
     Indication: TYPE 2 DIABETES MELLITUS
     Dosage: 15 U, EACH MORNING
     Route: 065
  4. HUMALOG 25% LISPRO, 75% NPL [Suspect]
     Dosage: 20 U, EACH MORNING
     Route: 065
  5. ASPIRIN [Concomitant]
     Dosage: 325 MG, UNKNOWN
  6. LOVAZA [Concomitant]
  7. VITAMIN D [Concomitant]
  8. ENALAPRIL [Concomitant]
  9. ATENOLOL [Concomitant]
     Dosage: 25 MG, UNKNOWN
  10. ATORVASTATIN [Concomitant]
  11. PLAVIX [Concomitant]
  12. IMDUR [Concomitant]

REACTIONS (7)
  - Chest discomfort [Unknown]
  - Blood pressure increased [Unknown]
  - Dizziness [Unknown]
  - Blood glucose increased [Unknown]
  - Pain [Recovering/Resolving]
  - Blood glucose increased [Recovered/Resolved]
  - Drug ineffective [Unknown]
